FAERS Safety Report 5865866-7 (Version None)
Quarter: 2008Q3

REPORT INFORMATION
  Report Type: 
  Country: None (occurrence: None)
  Receive Date: 20080829
  Receipt Date: 20080821
  Transmission Date: 20090109
  Serious: Yes (Hospitalization)
  Sender: FDA-Public Use
  Company Number: US-JNJCH-2008021861

PATIENT
  Age: 17 Year
  Sex: Male
  Weight: 53.1 kg

DRUGS (2)
  1. BENADRYL [Suspect]
     Indication: DRUG ABUSE
     Dosage: TEXT:21 TABLETS AT ONCE
     Route: 048
     Dates: start: 20080818, end: 20080818
  2. HYDROCODONE BITARTRATE [Suspect]
     Indication: DRUG ABUSE
     Dosage: TEXT:UNSPECIFIED
     Route: 065

REACTIONS (2)
  - DRUG ABUSE [None]
  - INTENTIONAL OVERDOSE [None]
